FAERS Safety Report 24603822 (Version 1)
Quarter: 2024Q4

REPORT INFORMATION
  Report Type: Report from Study
  Country: US (occurrence: US)
  Receive Date: 20241111
  Receipt Date: 20241111
  Transmission Date: 20250115
  Serious: Yes (Other)
  Sender: BAYER HEALTHCARE PHARMACEUTICALS INC.
  Company Number: US-BAYER-2024A146682

PATIENT
  Age: 64 Year
  Sex: Female

DRUGS (6)
  1. STIVARGA [Suspect]
     Active Substance: REGORAFENIB MONOHYDRATE
     Indication: Glioblastoma
     Dosage: 160 MG, QD
     Route: 048
     Dates: start: 20241011, end: 20241014
  2. DEXAMETHASONE [Suspect]
     Active Substance: DEXAMETHASONE
     Dosage: THREE TIMES A DAY
     Dates: start: 202410
  3. SEROQUEL XR [Concomitant]
     Active Substance: QUETIAPINE FUMARATE
     Dosage: UNK
  4. VITAMINS [Concomitant]
     Active Substance: VITAMINS
     Dosage: UNK
  5. AVASTIN [Concomitant]
     Active Substance: BEVACIZUMAB
     Dosage: UNK
  6. ONDANSETRON [Concomitant]
     Active Substance: ONDANSETRON
     Dosage: UNK

REACTIONS (8)
  - Unresponsive to stimuli [None]
  - Fatigue [Unknown]
  - Dysphonia [Unknown]
  - Nausea [Unknown]
  - Vomiting [Unknown]
  - Nonspecific reaction [None]
  - Hypersomnia [Recovering/Resolving]
  - Product prescribing issue [None]

NARRATIVE: CASE EVENT DATE: 20241001
